FAERS Safety Report 21410406 (Version 1)
Quarter: 2022Q4

REPORT INFORMATION
  Report Type: Spontaneous
  Country: HR (occurrence: None)
  Receive Date: 20221005
  Receipt Date: 20221005
  Transmission Date: 20230113
  Serious: Yes (Other)
  Sender: FDA-Public Use
  Company Number: 2022A331677

PATIENT
  Sex: Female

DRUGS (5)
  1. SEROQUEL [Suspect]
     Active Substance: QUETIAPINE FUMARATE
     Route: 048
  2. NORMABEL [Suspect]
     Active Substance: DIAZEPAM
     Route: 048
  3. TRAMADOL [Suspect]
     Active Substance: TRAMADOL
     Route: 048
  4. VOLTAREN [Suspect]
     Active Substance: DICLOFENAC SODIUM
     Dosage: 6 TBL
     Route: 048
  5. ZALDIAR [Suspect]
     Active Substance: ACETAMINOPHEN\TRAMADOL HYDROCHLORIDE
     Dosage: A PAIR OF TABLETS
     Route: 048

REACTIONS (3)
  - Intentional overdose [Unknown]
  - Suicide attempt [Unknown]
  - Somnolence [Unknown]

NARRATIVE: CASE EVENT DATE: 20220802
